FAERS Safety Report 5249675-8 (Version None)
Quarter: 2007Q1

REPORT INFORMATION
  Report Type: 
  Country: None (occurrence: None)
  Receive Date: 20070228
  Receipt Date: 20061020
  Transmission Date: 20070707
  Serious: No
  Sender: FDA-Public Use
  Company Number: US-GLAXOSMITHKLINE-A0613708A

PATIENT
  Age: 45 Year
  Sex: Male

DRUGS (5)
  1. IMITREX [Suspect]
     Indication: MIGRAINE
     Route: 058
  2. PROTONIX [Concomitant]
  3. VICODIN [Concomitant]
  4. WELLBUTRIN XL [Concomitant]
  5. CONCERTA [Concomitant]

REACTIONS (2)
  - CONTUSION [None]
  - PHARMACEUTICAL PRODUCT COMPLAINT [None]
